FAERS Safety Report 6021341-0 (Version None)
Quarter: 2008Q4

REPORT INFORMATION
  Report Type: 
  Country: None (occurrence: None)
  Receive Date: 20081229
  Receipt Date: 20081223
  Transmission Date: 20090506
  Serious: Yes (Death)
  Sender: FDA-Public Use
  Company Number: A0761569A

PATIENT
  Age: 77 Year
  Sex: Female
  Weight: 50 kg

DRUGS (2)
  1. SERETIDE [Suspect]
     Indication: PULMONARY FIBROSIS
     Route: 055
     Dates: start: 20080601, end: 20081205
  2. VIAGRA [Concomitant]
     Dates: start: 20081002, end: 20081205

REACTIONS (1)
  - PULMONARY EMBOLISM [None]
